FAERS Safety Report 9276693 (Version 3)
Quarter: 2013Q2

REPORT INFORMATION
  Report Type: Spontaneous
  Country: US (occurrence: US)
  Receive Date: 20130507
  Receipt Date: 20130607
  Transmission Date: 20140414
  Serious: Yes (Other)
  Sender: FDA-Public Use
  Company Number: PHEH2013US009943

PATIENT
  Sex: Male

DRUGS (3)
  1. DIOVAN HCT [Suspect]
     Dosage: UNK UKN, UNK
  2. DIOVAN [Suspect]
     Dosage: UNK UKN, UNK
  3. COREG [Concomitant]
     Dosage: UNK UKN, UNK

REACTIONS (2)
  - Myocardial infarction [Unknown]
  - Drug ineffective [Unknown]
